FAERS Safety Report 8226265-6 (Version None)
Quarter: 2012Q1

REPORT INFORMATION
  Report Type: 
  Country: None (occurrence: None)
  Receive Date: 20120321
  Receipt Date: 20120316
  Transmission Date: 20120608
  Serious: Yes (Other)
  Sender: FDA-Public Use
  Company Number: CHPA2012FR005109

PATIENT
  Sex: Male

DRUGS (4)
  1. TRAMADOL HCL [Concomitant]
     Indication: SCIATICA
     Dosage: UNK
  2. DICLOFENAC SODIUM [Suspect]
     Indication: SCIATICA
     Dosage: UNK, UNK
     Route: 065
     Dates: start: 20111001, end: 20111105
  3. VOLTAREN [Suspect]
     Indication: SCIATICA
     Dosage: UNK, UNK
     Route: 003
     Dates: start: 20111001, end: 20111105
  4. LOCOID [Suspect]
     Indication: SCIATICA
     Dosage: UNK, UNK
     Route: 003
     Dates: start: 20111001, end: 20111105

REACTIONS (3)
  - HERPES ZOSTER [None]
  - DRUG ADMINISTRATION ERROR [None]
  - DERMATITIS BULLOUS [None]
